FAERS Safety Report 7366893-3 (Version None)
Quarter: 2011Q1

REPORT INFORMATION
  Report Type: 
  Country: None (occurrence: None)
  Receive Date: 20110322
  Receipt Date: 20110315
  Transmission Date: 20110831
  Serious: Yes (Hospitalization)
  Sender: FDA-Public Use
  Company Number: A0919253A

PATIENT
  Age: 60 Year
  Sex: Male

DRUGS (1)
  1. MELPHALAN [Suspect]
     Dosage: 200MGM2 UNKNOWN
     Route: 065

REACTIONS (1)
  - FEBRILE NEUTROPENIA [None]
